FAERS Safety Report 20224729 (Version 1)
Quarter: 2021Q4

REPORT INFORMATION
  Report Type: Other
  Country: DE (occurrence: DE)
  Receive Date: 20211223
  Receipt Date: 20211223
  Transmission Date: 20220303
  Serious: Yes (Congenital Anomaly)
  Sender: FDA-Public Use
  Company Number: DE-EMBRYOTOX-202011286

PATIENT
  Age: 1 Day
  Sex: Female
  Weight: 2.55 kg

DRUGS (5)
  1. PROGESTERONE [Suspect]
     Active Substance: PROGESTERONE
     Indication: Assisted fertilisation
     Dosage: 600 [MG/D ] 3 SEPARATED DOSES
     Route: 064
     Dates: start: 20200521, end: 20200626
  2. DALTEPARIN SODIUM [Concomitant]
     Active Substance: DALTEPARIN SODIUM
     Indication: Factor II mutation
     Dosage: 5000 [IE/D ]
     Route: 064
     Dates: start: 20200613, end: 20210116
  3. BOOSTRIX [Concomitant]
     Active Substance: TETANUS TOXOID, REDUCED DIPHTHERIA TOXOID AND ACELLULAR PERTUSSIS VACCINE, ADSORBED ANTIGENS
     Indication: Immunisation
     Route: 064
     Dates: start: 20201123, end: 20201123
  4. INFLUVAC TETRA [Concomitant]
     Active Substance: INFLUENZA VIRUS VACCINE QUADRIVALENT TYPE A+B
     Indication: Immunisation
     Route: 064
     Dates: start: 20201217, end: 20201217
  5. LEVOTHYROXINE SODIUM [Concomitant]
     Active Substance: LEVOTHYROXINE SODIUM
     Indication: Hypothyroidism
     Dosage: 125 [?G/D ]/ INITIAL 88?G/D, INCREASED DOSAGE TO 125?G/D
     Route: 064
     Dates: start: 20200509, end: 20210116

REACTIONS (4)
  - Renal aplasia [Not Recovered/Not Resolved]
  - Haemangioma congenital [Not Recovered/Not Resolved]
  - Umbilical hernia [Recovering/Resolving]
  - Foetal exposure during pregnancy [Unknown]

NARRATIVE: CASE EVENT DATE: 20210116
